FAERS Safety Report 4741871-9 (Version None)
Quarter: 2005Q3

REPORT INFORMATION
  Report Type: 
  Country: None (occurrence: None)
  Receive Date: 20050803
  Receipt Date: 20041111
  Transmission Date: 20060218
  Serious: Yes (Other)
  Sender: FDA-Public Use
  Company Number: 2004092572

PATIENT
  Age: 62 Year
  Sex: Male
  Weight: 68.0396 kg

DRUGS (5)
  1. CAMPTOSAR [Suspect]
     Indication: RECTAL CANCER
     Dosage: 176 MG, INTRAVENOUS
     Route: 042
     Dates: start: 20041013
  2. BEVACIZUMAB (BEVACIZUMAB) [Suspect]
     Indication: RECTAL CANCER
     Dosage: 340 MG, INTRAVENOUS
     Route: 042
     Dates: start: 20041013
  3. DOLASETRON MESILATE (DOLASETRON MESILATE) [Concomitant]
  4. DEXAMETHASONE [Concomitant]
  5. CORTICOSTEROIDS (CORTICOSTEROIDS) [Concomitant]

REACTIONS (8)
  - BLOOD PRESSURE INCREASED [None]
  - ERYTHEMA [None]
  - FEELING HOT [None]
  - FLUSHING [None]
  - HYPERSENSITIVITY [None]
  - PRURITUS GENERALISED [None]
  - RASH [None]
  - SWELLING FACE [None]
